FAERS Safety Report 13064710 (Version 4)
Quarter: 2017Q1

REPORT INFORMATION
  Report Type: Spontaneous
  Country: US (occurrence: US)
  Receive Date: 20161227
  Receipt Date: 20170117
  Transmission Date: 20170428
  Serious: Yes (Other)
  Sender: FDA-Public Use
  Company Number: US-PFIZER INC-2016589960

PATIENT
  Sex: Male

DRUGS (1)
  1. LYRICA [Suspect]
     Active Substance: PREGABALIN
     Dosage: 6 TABLETS, UNK

REACTIONS (7)
  - Cerebrovascular accident [Unknown]
  - Intentional product use issue [Unknown]
  - Drug ineffective [Unknown]
  - Thrombosis [Unknown]
  - Pain in extremity [Unknown]
  - Drug dispensing error [Unknown]
  - Burning sensation [Unknown]

NARRATIVE: CASE EVENT DATE: 2009
